FAERS Safety Report 19959331 (Version 1)
Quarter: 2021Q4

REPORT INFORMATION
  Report Type: Spontaneous
  Country: US (occurrence: US)
  Receive Date: 20211015
  Receipt Date: 20211015
  Transmission Date: 20220303
  Serious: Yes (Death, Hospitalization)
  Sender: FDA-Public Use
  Company Number: US-GW PHARMA-202110USGW04909

PATIENT

DRUGS (2)
  1. EPIDIOLEX [Suspect]
     Active Substance: CANNABIDIOL
     Indication: Epilepsy
     Dosage: 60 MILLIGRAM, BID
     Dates: start: 20210707
  2. VIGABATRIN [Concomitant]
     Active Substance: VIGABATRIN
     Indication: Epilepsy
     Dosage: 10 MILLILITER, BID
     Route: 065
     Dates: start: 20191015

REACTIONS (2)
  - COVID-19 [Unknown]
  - Death [Fatal]

NARRATIVE: CASE EVENT DATE: 20211005
